FAERS Safety Report 20471305 (Version 2)
Quarter: 2022Q3

REPORT INFORMATION
  Report Type: Spontaneous
  Country: US (occurrence: US)
  Receive Date: 20220214
  Receipt Date: 20220721
  Transmission Date: 20221026
  Serious: Yes (Death, Hospitalization)
  Sender: FDA-Public Use
  Company Number: US-BAYER-2022P000095

PATIENT
  Age: 51 Year
  Sex: Male

DRUGS (15)
  1. ADEMPAS [Suspect]
     Active Substance: RIOCIGUAT
     Indication: Pulmonary arterial hypertension
     Dosage: 2.5 MG, TID
     Route: 048
     Dates: start: 20210506, end: 20220629
  2. ADEMPAS [Suspect]
     Active Substance: RIOCIGUAT
     Indication: Pulmonary arterial hypertension
  3. AMBRISENTAN [Concomitant]
     Active Substance: AMBRISENTAN
     Indication: Pulmonary hypertension
     Dosage: UNK
  4. ZOLPIDEM [Concomitant]
     Active Substance: ZOLPIDEM TARTRATE
     Dosage: UNK
  5. BUMETANIDE [Concomitant]
     Active Substance: BUMETANIDE
     Dosage: UNK
  6. HYDROXYZINE [Concomitant]
     Active Substance: HYDROXYZINE HYDROCHLORIDE
     Dosage: UNK
  7. METOLAZONE [Concomitant]
     Active Substance: METOLAZONE
     Dosage: UNK
  8. POTASSIUM CHLORIDE [Concomitant]
     Active Substance: POTASSIUM CHLORIDE
     Dosage: UNK
  9. MIDODRINE [Concomitant]
     Active Substance: MIDODRINE
     Dosage: UNK
  10. BISOPROLOL [Concomitant]
     Active Substance: BISOPROLOL
     Dosage: UNK
  11. FERROUS SULFATE [Concomitant]
     Active Substance: FERROUS SULFATE
     Dosage: UNK
  12. URSODIOL [Concomitant]
     Active Substance: URSODIOL
     Dosage: UNK
  13. VITAMIN D NOS [Concomitant]
     Active Substance: VITAMIN D NOS
     Dosage: UNK
  14. SPIRONOLACTONE [Concomitant]
     Active Substance: SPIRONOLACTONE
     Dosage: UNK
  15. CLEARLAX [Concomitant]
     Active Substance: POLYETHYLENE GLYCOL 3350
     Dosage: UNK

REACTIONS (17)
  - Hypoxia [Fatal]
  - Lower gastrointestinal haemorrhage [None]
  - Iron deficiency anaemia [None]
  - Haemoglobin abnormal [None]
  - Acute kidney injury [None]
  - Cardiac failure acute [None]
  - Intestinal mass [None]
  - Metastatic neoplasm [None]
  - Septic shock [None]
  - Urine output decreased [None]
  - Encephalopathy [None]
  - Azotaemia [None]
  - Hypervolaemia [None]
  - Haemodialysis [None]
  - Amyloidosis [None]
  - Acute respiratory distress syndrome [None]
  - Acute pulmonary oedema [None]

NARRATIVE: CASE EVENT DATE: 20220601
